FAERS Safety Report 22086498 (Version 1)
Quarter: 2023Q1

REPORT INFORMATION
  Report Type: Spontaneous
  Country: US (occurrence: None)
  Receive Date: 20230312
  Receipt Date: 20230312
  Transmission Date: 20230417
  Serious: Yes (Hospitalization)
  Sender: FDA-Public Use
  Company Number: US-ROCHE-3304065

PATIENT
  Age: 58 Year
  Sex: Female

DRUGS (2)
  1. XOLAIR [Suspect]
     Active Substance: OMALIZUMAB
     Indication: Asthma
     Dosage: DOSE: 75 MG/0.5 ML, STRENGTH:  75 MG/0.5 ML
     Route: 058
     Dates: start: 20220816
  2. XOLAIR [Suspect]
     Active Substance: OMALIZUMAB
     Dosage: DOSE: 150 MG/ML, STRENGTH:  150 MG/ML SYRINGE
     Route: 058
     Dates: start: 20220816

REACTIONS (3)
  - Pneumonia bacterial [Unknown]
  - Condition aggravated [Unknown]
  - Impaired quality of life [Unknown]

NARRATIVE: CASE EVENT DATE: 20221201
